FAERS Safety Report 6715176-0 (Version None)
Quarter: 2010Q2

REPORT INFORMATION
  Report Type: 
  Country: None (occurrence: None)
  Receive Date: 20100507
  Receipt Date: 20100429
  Transmission Date: 20101027
  Serious: Yes (Life-Threatening, Hospitalization)
  Sender: FDA-Public Use
  Company Number: DK-KINGPHARMUSA00001-K201000511

PATIENT
  Sex: Female

DRUGS (3)
  1. EPIPEN [Suspect]
     Indication: ANAPHYLACTIC SHOCK
     Dosage: 0.3 MG, SINGLE
     Dates: start: 20090528, end: 20090528
  2. CORTISONE [Concomitant]
  3. ANTIHISTAMINES [Concomitant]

REACTIONS (4)
  - ACCIDENTAL EXPOSURE [None]
  - INJECTION SITE PALLOR [None]
  - MUSCLE SPASMS [None]
  - SKELETAL INJURY [None]
